FAERS Safety Report 11500234 (Version 2)
Quarter: 2015Q4

REPORT INFORMATION
  Report Type: Spontaneous
  Country: FR (occurrence: FR)
  Receive Date: 20150914
  Receipt Date: 20151109
  Transmission Date: 20160304
  Serious: Yes (Death, Other)
  Sender: FDA-Public Use
  Company Number: FR-ALXN-A201503388AA

PATIENT
  Sex: Male
  Weight: 70 kg

DRUGS (1)
  1. SOLIRIS [Suspect]
     Active Substance: ECULIZUMAB
     Indication: HAEMOLYTIC URAEMIC SYNDROME
     Dosage: 900 MG, SINGLE
     Route: 042
     Dates: start: 20150803, end: 20150803

REACTIONS (4)
  - Neoplasm malignant [Fatal]
  - Coma [Unknown]
  - Haemolytic uraemic syndrome [Fatal]
  - Renal failure [Unknown]
